FAERS Safety Report 4335093-3 (Version None)
Quarter: 2004Q2

REPORT INFORMATION
  Report Type: 
  Country: None (occurrence: None)
  Receive Date: 20040405
  Receipt Date: 20040323
  Transmission Date: 20050107
  Serious: Yes (Hospitalization)
  Sender: FDA-Public Use
  Company Number: UK068635

PATIENT
  Age: 49 Year
  Sex: Female

DRUGS (2)
  1. NEUPOGEN [Suspect]
     Indication: CHEMOTHERAPY
     Dosage: 300 MGC, 1 IN 1 DAYS, SC
     Route: 058
     Dates: start: 20020620, end: 20020627
  2. EPIRUBICIN [Suspect]
     Dosage: 258 MG, IV
     Route: 042
     Dates: start: 20020618, end: 20020618

REACTIONS (2)
  - BONE PAIN [None]
  - MUSCLE CRAMP [None]
